FAERS Safety Report 4887576-5 (Version None)
Quarter: 2006Q1

REPORT INFORMATION
  Report Type: 
  Country: None (occurrence: None)
  Receive Date: 20060123
  Receipt Date: 20051223
  Transmission Date: 20060701
  Serious: Yes (Hospitalization)
  Sender: FDA-Public Use
  Company Number: PHBS2005ES18998

PATIENT
  Age: 64 Year
  Sex: Male

DRUGS (3)
  1. ZOMETA [Suspect]
     Indication: MULTIPLE MYELOMA
     Dosage: UNK, UNK
     Route: 065
     Dates: start: 20030301, end: 20050801
  2. PREDNISONE [Concomitant]
  3. CALCIUM GLUCONATE [Concomitant]

REACTIONS (1)
  - OSTEONECROSIS [None]
